FAERS Safety Report 8083815-0 (Version None)
Quarter: 2012Q1

REPORT INFORMATION
  Report Type: 
  Country: None (occurrence: None)
  Receive Date: 20120128
  Receipt Date: 20110201
  Transmission Date: 20120608
  Serious: No
  Sender: FDA-Public Use
  Company Number: US-ABBOTT-11P-163-0702256-00

PATIENT
  Age: 74 Year
  Sex: Female

DRUGS (6)
  1. METHOTREXATE [Concomitant]
     Indication: RHEUMATOID ARTHRITIS
     Dosage: DOSAGE 3 PILLS A WEEK
  2. HUMIRA [Suspect]
     Indication: RHEUMATOID ARTHRITIS
     Dates: start: 20101001
  3. TRIPLE THERAPY PREV PACK [Suspect]
     Indication: HELICOBACTER TEST POSITIVE
     Dates: start: 20110117
  4. LEVOTHYROXINE SODIUM [Concomitant]
     Indication: THYROID DISORDER
     Dosage: 100 MCG DAILY
  5. SOMA [Concomitant]
     Indication: FIBROMYALGIA
     Dosage: 2 TABLETS AT BEDTIME
  6. PREDNISONE TAB [Concomitant]
     Indication: PRODUCT USED FOR UNKNOWN INDICATION
     Dosage: 5 MG DAILY

REACTIONS (4)
  - HELICOBACTER TEST POSITIVE [None]
  - RASH PRURITIC [None]
  - RASH GENERALISED [None]
  - URTICARIA [None]
